FAERS Safety Report 12744009 (Version 1)
Quarter: 2016Q3

REPORT INFORMATION
  Report Type: Report from Study
  Country: US (occurrence: US)
  Receive Date: 20160914
  Receipt Date: 20160914
  Transmission Date: 20161109
  Serious: Yes (Hospitalization)
  Sender: FDA-Public Use
  Company Number: US-MYLANLABS-2016M1038259

PATIENT

DRUGS (9)
  1. CELECOXIB. [Suspect]
     Active Substance: CELECOXIB
     Indication: OSTEOARTHRITIS
     Dosage: UNK
     Route: 048
     Dates: start: 20070228, end: 20080929
  2. OXYCODONE HYDROCHLORIDE/OXYCODONE TEREPHTHALATE/PARACETAMOL [Concomitant]
     Dosage: UNK
     Dates: start: 20080212
  3. INSULIN GLARGINE [Concomitant]
     Active Substance: INSULIN GLARGINE
     Dosage: UNK
     Dates: start: 20080918
  4. HYDROCHLOROTHIAZIDE/TRIAMTERENE [Concomitant]
     Dosage: UNK
     Dates: start: 20070227
  5. PREDNISONE. [Concomitant]
     Active Substance: PREDNISONE
     Dosage: UNK
     Dates: start: 20080819
  6. AMLODIPINE BESILATE/ATORVASTATIN CALCIUM [Concomitant]
     Dosage: UNK
     Dates: start: 20061026
  7. GLIPIZIDE. [Suspect]
     Active Substance: GLIPIZIDE
     Indication: TYPE 2 DIABETES MELLITUS
     Dosage: 2.5 MG, QD
     Route: 048
     Dates: start: 20070126, end: 20081007
  8. ACETYLSALICYLIC ACID [Concomitant]
     Active Substance: ASPIRIN
     Dosage: UNK
     Dates: start: 20011210
  9. INSULIN LISPRO [Concomitant]
     Active Substance: INSULIN LISPRO
     Dosage: UNK
     Dates: start: 20080918

REACTIONS (1)
  - Erythema nodosum [Recovering/Resolving]

NARRATIVE: CASE EVENT DATE: 20080929
